FAERS Safety Report 23763503 (Version 1)
Quarter: 2024Q2

REPORT INFORMATION
  Report Type: Spontaneous
  Country: IT (occurrence: IT)
  Receive Date: 20240419
  Receipt Date: 20240419
  Transmission Date: 20240715
  Serious: Yes (Other)
  Sender: FDA-Public Use
  Company Number: IT-ABBVIE-5723308

PATIENT

DRUGS (1)
  1. UPADACITINIB [Suspect]
     Active Substance: UPADACITINIB
     Indication: Ankylosing spondylitis
     Route: 048

REACTIONS (8)
  - Neoplasm [Unknown]
  - Acne [Unknown]
  - Adverse event [Unknown]
  - Drug ineffective [Unknown]
  - Gastrointestinal disorder [Unknown]
  - Infection [Unknown]
  - COVID-19 [Unknown]
  - Therapeutic product effect decreased [Unknown]
